FAERS Safety Report 5796757-8 (Version None)
Quarter: 2008Q3

REPORT INFORMATION
  Report Type: 
  Country: None (occurrence: None)
  Receive Date: 20080701
  Receipt Date: 20080627
  Transmission Date: 20090109
  Serious: Yes (Hospitalization)
  Sender: FDA-Public Use
  Company Number: FR-WYE-G01775408

PATIENT
  Sex: Male
  Weight: 9.2 kg

DRUGS (1)
  1. ADVIL [Suspect]
     Indication: VARICELLA
     Dosage: 250 MG TOTAL DAILY
     Route: 048
     Dates: start: 20080401, end: 20080401

REACTIONS (2)
  - LUNG DISORDER [None]
  - PLEURAL EFFUSION [None]
